FAERS Safety Report 18536143 (Version 1)
Quarter: 2020Q4

REPORT INFORMATION
  Report Type: Other
  Country: US (occurrence: US)
  Receive Date: 20201124
  Receipt Date: 20201124
  Transmission Date: 20210114
  Serious: Yes (Death)
  Sender: FDA-Public Use
  Company Number: US-ROCHE-2719225

PATIENT
  Sex: Male

DRUGS (1)
  1. ESBRIET [Suspect]
     Active Substance: PIRFENIDONE
     Indication: IDIOPATHIC PULMONARY FIBROSIS
     Dosage: TOOK 1 TABLET BY MOUTH 3 TIMES A DAY WITH MEALS (30 DAY SUPPLY, 90 TABLETS)
     Route: 048

REACTIONS (1)
  - Death [Fatal]
